FAERS Safety Report 17259104 (Version 1)
Quarter: 2020Q1

REPORT INFORMATION
  Report Type: Spontaneous
  Country: IN (occurrence: IN)
  Receive Date: 20200110
  Receipt Date: 20200110
  Transmission Date: 20200409
  Serious: Yes (Life-Threatening, Hospitalization, Other)
  Sender: FDA-Public Use
  Company Number: IN-JNJFOC-20200105687

PATIENT
  Age: 6 Month
  Sex: Female
  Weight: 6.5 kg

DRUGS (9)
  1. HALOTHANE. [Suspect]
     Active Substance: HALOTHANE
     Indication: MAINTENANCE OF ANAESTHESIA
     Dosage: UNK
     Route: 065
  2. PHENOBARBITAL. [Suspect]
     Active Substance: PHENOBARBITAL
     Indication: PRODUCT USED FOR UNKNOWN INDICATION
     Dosage: UNK
     Route: 042
  3. TRAMADOL HYDROCHLORIDE. [Suspect]
     Active Substance: TRAMADOL HYDROCHLORIDE
     Indication: PREMEDICATION
     Dosage: 1 MG/KG, UNK
     Route: 042
  4. LEVETIRACETAM. [Suspect]
     Active Substance: LEVETIRACETAM
     Indication: PRODUCT USED FOR UNKNOWN INDICATION
     Dosage: UNK
     Route: 042
  5. LORAZEPAM. [Suspect]
     Active Substance: LORAZEPAM
     Indication: PRODUCT USED FOR UNKNOWN INDICATION
     Dosage: UNK
     Route: 042
  6. GLYCOPYRROLATE                     /00196202/ [Concomitant]
     Active Substance: GLYCOPYRROLATE
     Indication: ANTIBIOTIC THERAPY
     Dosage: 4 MCG/KG, UNK
     Route: 042
  7. ROCURONIUM [Suspect]
     Active Substance: ROCURONIUM BROMIDE
     Indication: PRODUCT USED FOR UNKNOWN INDICATION
     Dosage: 0.8 MG/KG, UNK
     Route: 042
  8. MIDAZOLAM HYDROCHLORIDE. [Suspect]
     Active Substance: MIDAZOLAM HYDROCHLORIDE
     Indication: PREMEDICATION
     Dosage: 0.05 MG/KG, UNK
     Route: 042
  9. PROPOFOL. [Suspect]
     Active Substance: PROPOFOL
     Indication: INDUCTION OF ANAESTHESIA
     Dosage: 1.5 MG/KG, UNK
     Route: 042

REACTIONS (5)
  - Depressed level of consciousness [Recovering/Resolving]
  - Bradycardia [Recovered/Resolved]
  - Respiratory acidosis [Recovered/Resolved]
  - Seizure [Recovered/Resolved]
  - Oxygen saturation decreased [Recovered/Resolved]
